FAERS Safety Report 26096606 (Version 1)
Quarter: 2025Q4

REPORT INFORMATION
  Report Type: Report from Study
  Country: US (occurrence: US)
  Receive Date: 20251127
  Receipt Date: 20251127
  Transmission Date: 20260117
  Serious: Yes (Other)
  Sender: ALEXION PHARMACEUTICALS
  Company Number: US-AstraZeneca-CH-01001028A

PATIENT
  Sex: Female

DRUGS (1)
  1. ACALABRUTINIB [Suspect]
     Active Substance: ACALABRUTINIB
     Indication: Chronic lymphocytic leukaemia
     Dosage: 100 MILLIGRAM, BID

REACTIONS (11)
  - COVID-19 [Unknown]
  - Cough [Unknown]
  - Dyspnoea [Unknown]
  - Arthritis [Unknown]
  - Neuropathy peripheral [Unknown]
  - Autoimmune vasculitis [Unknown]
  - Fatigue [Unknown]
  - Pain [Unknown]
  - Emotional disorder [Unknown]
  - General physical health deterioration [Unknown]
  - Decreased activity [Unknown]
